FAERS Safety Report 4663330-4 (Version None)
Quarter: 2005Q2

REPORT INFORMATION
  Report Type: 
  Country: None (occurrence: None)
  Receive Date: 20050513
  Receipt Date: 20050301
  Transmission Date: 20051028
  Serious: Yes (Hospitalization)
  Sender: FDA-Public Use
  Company Number: 230016K05AUS

PATIENT
  Age: 48 Year
  Sex: Female
  Weight: 50 kg

DRUGS (6)
  1. REBIF [Suspect]
     Indication: MULTIPLE SCLEROSIS
     Dosage: 44 MG, 3 IN 1 WEEKS, SUBCUTANEOUS
     Route: 058
     Dates: start: 20041220
  2. ESOMEPRAZOLE [Concomitant]
  3. WARFARIN SODIUM [Concomitant]
  4. LISINOPRIL [Concomitant]
  5. MELOXICAM [Concomitant]
  6. ACETYLSALICYLIC ACID [Concomitant]

REACTIONS (2)
  - ATRIAL FIBRILLATION [None]
  - PULMONARY OEDEMA [None]
